FAERS Safety Report 6710733-X (Version None)
Quarter: 2010Q2

REPORT INFORMATION
  Report Type: 
  Country: None (occurrence: None)
  Receive Date: 20100504
  Receipt Date: 20100504
  Transmission Date: 20101027
  Serious: Yes (Other)
  Sender: FDA-Public Use
  Company Number: None

PATIENT
  Age: 27 Year
  Sex: Female
  Weight: 68.0396 kg

DRUGS (1)
  1. XYZAL [Suspect]
     Indication: HYPERSENSITIVITY
     Dosage: 1 PILL ONCE PER DAY PO
     Route: 048
     Dates: start: 20100422, end: 20100429

REACTIONS (11)
  - ABDOMINAL PAIN UPPER [None]
  - ABNORMAL BEHAVIOUR [None]
  - AGGRESSION [None]
  - ANGER [None]
  - ANXIETY [None]
  - DEPRESSION [None]
  - DIARRHOEA [None]
  - HEADACHE [None]
  - MOOD SWINGS [None]
  - NAUSEA [None]
  - NIGHT SWEATS [None]
